FAERS Safety Report 5870520-1 (Version None)
Quarter: 2008Q3

REPORT INFORMATION
  Report Type: 
  Country: None (occurrence: None)
  Receive Date: 20080829
  Receipt Date: 20080818
  Transmission Date: 20090109
  Serious: Yes (Disabling)
  Sender: FDA-Public Use
  Company Number: 2008S1014993

PATIENT
  Age: 17 Year
  Sex: Female
  Weight: 43.0917 kg

DRUGS (2)
  1. METHYLPHENIDATE HYDROCHLORIDE [Suspect]
     Indication: ATTENTION DEFICIT/HYPERACTIVITY DISORDER
     Dosage: 20 MG; 4 TIMES A DAY; ORAL
     Route: 048
     Dates: start: 19960101
  2. CLONIDINE HCL [Suspect]
     Indication: INITIAL INSOMNIA
     Dosage: 0.1 MG; TWICE A DAY; ORAL
     Route: 048
     Dates: start: 20060101

REACTIONS (8)
  - COORDINATION ABNORMAL [None]
  - DISABILITY [None]
  - DRUG INTERACTION [None]
  - DYSKINESIA [None]
  - MOVEMENT DISORDER [None]
  - MUSCULOSKELETAL STIFFNESS [None]
  - TARDIVE DYSKINESIA [None]
  - WEIGHT DECREASED [None]
